FAERS Safety Report 23656047 (Version 1)
Quarter: 2024Q1

REPORT INFORMATION
  Report Type: Spontaneous
  Country: US (occurrence: US)
  Receive Date: 20240321
  Receipt Date: 20240321
  Transmission Date: 20240410
  Serious: No
  Sender: FDA-Public Use
  Company Number: US-NEBO-PC013741

PATIENT
  Age: 64 Year
  Sex: Male

DRUGS (2)
  1. MONOFERRIC [Suspect]
     Active Substance: FERRIC DERISOMALTOSE
     Indication: Product used for unknown indication
     Route: 050
     Dates: start: 20231109, end: 20231109
  2. VITAMIN B12 [Concomitant]
     Active Substance: CYANOCOBALAMIN
     Route: 050

REACTIONS (6)
  - Back pain [Recovered/Resolved]
  - Abdominal discomfort [Recovered/Resolved]
  - Feeling abnormal [Recovered/Resolved]
  - Flushing [Recovered/Resolved]
  - Body temperature increased [Recovered/Resolved]
  - Feeling cold [Recovered/Resolved]

NARRATIVE: CASE EVENT DATE: 20231109
